FAERS Safety Report 4448857-2 (Version None)
Quarter: 2004Q3

REPORT INFORMATION
  Report Type: 
  Country: None (occurrence: None)
  Receive Date: 20040909
  Receipt Date: 20040901
  Transmission Date: 20050211
  Serious: Yes (Death)
  Sender: FDA-Public Use
  Company Number: TCI2003A03930

PATIENT
  Age: 68 Year
  Sex: Male

DRUGS (8)
  1. ACTOS [Suspect]
     Indication: DIABETES MELLITUS NON-INSULIN-DEPENDENT
     Dosage: 15 MG (15 MG, 1 IN 1 D); PER ORAL (SEE IMAGE)
     Route: 048
     Dates: start: 20000822, end: 20001011
  2. ACTOS [Suspect]
     Indication: DIABETES MELLITUS NON-INSULIN-DEPENDENT
     Dosage: 15 MG (15 MG, 1 IN 1 D); PER ORAL (SEE IMAGE)
     Route: 048
     Dates: start: 20001012
  3. GLICLAZIDE [Concomitant]
  4. CILOSTAZOL [Concomitant]
  5. NILVADIPINE [Concomitant]
  6. JUVELA N (TOCOPHERYL NICOTINATE) [Concomitant]
  7. GLIBENCLAMIDE [Concomitant]
  8. GLIMEPIRIDE [Concomitant]

REACTIONS (1)
  - DEATH [None]
